FAERS Safety Report 17945013 (Version 1)
Quarter: 2020Q2

REPORT INFORMATION
  Report Type: Spontaneous
  Country: US (occurrence: US)
  Receive Date: 20200625
  Receipt Date: 20200625
  Transmission Date: 20200714
  Serious: No
  Sender: FDA-Public Use
  Company Number: US-SA-2020SA162919

PATIENT

DRUGS (5)
  1. METOPROLOL. [Concomitant]
     Active Substance: METOPROLOL
  2. OMEPRAZOLE. [Concomitant]
     Active Substance: OMEPRAZOLE
  3. DUPIXENT [Suspect]
     Active Substance: DUPILUMAB
     Indication: NASAL POLYPS
     Dosage: 300 MG, QOW
     Route: 058
     Dates: start: 20191113
  4. ASPIRIN. [Concomitant]
     Active Substance: ASPIRIN
  5. ALLERGY RELIEF [CETIRIZINE HYDROCHLORIDE] [Concomitant]

REACTIONS (1)
  - Skin abrasion [Unknown]

NARRATIVE: CASE EVENT DATE: 20200612
